FAERS Safety Report 23231346 (Version 1)
Quarter: 2023Q4

REPORT INFORMATION
  Report Type: Spontaneous
  Country: US (occurrence: None)
  Receive Date: 20231124
  Receipt Date: 20231124
  Transmission Date: 20240110
  Serious: Yes (Disabling)
  Sender: FDA-Public Use
  Company Number: None

PATIENT
  Age: 73 Year
  Sex: Female
  Weight: 70.65 kg

DRUGS (9)
  1. VERZENIO [Suspect]
     Active Substance: ABEMACICLIB
     Indication: Neoplasm recurrence
     Dosage: OTHER QUANTITY : 1 TABLET(S);?FREQUENCY : TWICE A DAY;?
     Route: 048
     Dates: start: 20230913, end: 20231108
  2. VERZENIO [Suspect]
     Active Substance: ABEMACICLIB
     Indication: Prophylaxis
  3. ARIMIDEX [Concomitant]
     Active Substance: ANASTROZOLE
  4. OLMESARTAN [Concomitant]
     Active Substance: OLMESARTAN
  5. VITAMIN D3 [Concomitant]
     Active Substance: CHOLECALCIFEROL
  6. VITAMIN B12 [Concomitant]
     Active Substance: CYANOCOBALAMIN
  7. BENEFIBER [Concomitant]
     Active Substance: STARCH, WHEAT
  8. PROBIOTICS NOS [Concomitant]
     Active Substance: PROBIOTICS NOS
  9. IMODIUM [Concomitant]
     Active Substance: LOPERAMIDE HYDROCHLORIDE

REACTIONS (8)
  - Pneumonitis [None]
  - Pulmonary mass [None]
  - Blood creatinine increased [None]
  - Haemoglobin decreased [None]
  - Haematocrit decreased [None]
  - Rash [None]
  - Diarrhoea [None]
  - Dehydration [None]

NARRATIVE: CASE EVENT DATE: 20231122
